FAERS Safety Report 23743353 (Version 2)
Quarter: 2024Q2

REPORT INFORMATION
  Report Type: Spontaneous
  Country: US (occurrence: US)
  Receive Date: 20240415
  Receipt Date: 20240424
  Transmission Date: 20240716
  Serious: Yes (Other)
  Sender: FDA-Public Use
  Company Number: US-JNJFOC-20240413340

PATIENT
  Age: 65 Year
  Sex: Male

DRUGS (2)
  1. ZYTIGA [Suspect]
     Active Substance: ABIRATERONE ACETATE
     Indication: Product used for unknown indication
     Route: 048
  2. ORGOVYX [Suspect]
     Active Substance: RELUGOLIX
     Indication: Neoplasm malignant
     Route: 048
     Dates: start: 20210716

REACTIONS (9)
  - Cardiac hypertrophy [Unknown]
  - Dizziness [Not Recovered/Not Resolved]
  - Hunger [Unknown]
  - Diarrhoea [Unknown]
  - Weight increased [Unknown]
  - Heart rate decreased [Not Recovered/Not Resolved]
  - Nocturia [Unknown]
  - Mouth swelling [Unknown]
  - Gingival swelling [Unknown]
